FAERS Safety Report 12987839 (Version 2)
Quarter: 2016Q4

REPORT INFORMATION
  Report Type: Report from Study
  Country: PA (occurrence: PA)
  Receive Date: 20161130
  Receipt Date: 20161213
  Transmission Date: 20170207
  Serious: Yes (Other)
  Sender: FDA-Public Use
  Company Number: PHHY2016PA162665

PATIENT
  Age: 72 Year
  Sex: Male
  Weight: 69.84 kg

DRUGS (3)
  1. AFINITOR [Suspect]
     Active Substance: EVEROLIMUS
     Indication: BONE CANCER METASTATIC
  2. AFINITOR [Suspect]
     Active Substance: EVEROLIMUS
     Indication: LUNG CANCER METASTATIC
     Dosage: 10 MG, QD
     Route: 048
     Dates: start: 201609
  3. AFINITOR [Suspect]
     Active Substance: EVEROLIMUS
     Indication: HEPATIC CANCER METASTATIC
     Dosage: 5 MG, UNK
     Route: 065

REACTIONS (9)
  - Bone loss [Unknown]
  - Pruritus [Recovered/Resolved]
  - Pruritus generalised [Unknown]
  - Rash [Unknown]
  - Pain in extremity [Unknown]
  - Metastases to bone [Unknown]
  - Nasopharyngitis [Recovered/Resolved]
  - Product use issue [Unknown]
  - Catarrh [Recovered/Resolved]

NARRATIVE: CASE EVENT DATE: 201609
